FAERS Safety Report 8379322-8 (Version None)
Quarter: 2012Q2

REPORT INFORMATION
  Report Type: 
  Country: None (occurrence: None)
  Receive Date: 20120523
  Receipt Date: 20120517
  Transmission Date: 20120825
  Serious: Yes (Hospitalization, Other)
  Sender: FDA-Public Use
  Company Number: PHHY2008BR16175

PATIENT
  Age: 39 Year
  Sex: Male

DRUGS (1)
  1. EXFORGE [Suspect]
     Dosage: 320/10 MG DAILY
     Route: 048

REACTIONS (12)
  - HYPERTENSION [None]
  - BLOOD PRESSURE DECREASED [None]
  - SWELLING [None]
  - FEELING ABNORMAL [None]
  - GAIT DISTURBANCE [None]
  - DRY MOUTH [None]
  - FATIGUE [None]
  - GASTROINTESTINAL INFECTION [None]
  - BLOOD POTASSIUM DECREASED [None]
  - CARDIAC ARREST [None]
  - PAIN [None]
  - LIP SWELLING [None]
